FAERS Safety Report 5754781-5 (Version None)
Quarter: 2008Q2

REPORT INFORMATION
  Report Type: 
  Country: None (occurrence: None)
  Receive Date: 20080527
  Receipt Date: 20080509
  Transmission Date: 20081010
  Serious: Yes (Other)
  Sender: FDA-Public Use
  Company Number: ALL1-2008-01113

PATIENT
  Age: 5 Year
  Sex: Male
  Weight: 29 kg

DRUGS (4)
  1. VYVANSE [Suspect]
     Indication: ATTENTION DEFICIT/HYPERACTIVITY DISORDER
     Dosage: 30 MG, 1X/DAY:QD, ORAL, 50 MG, 1X/DAY:QD, ORAL, 30 MG, 1X/DAY:QD, ORAL
     Route: 048
     Dates: start: 20071010, end: 20071204
  2. VYVANSE [Suspect]
     Indication: ATTENTION DEFICIT/HYPERACTIVITY DISORDER
     Dosage: 30 MG, 1X/DAY:QD, ORAL, 50 MG, 1X/DAY:QD, ORAL, 30 MG, 1X/DAY:QD, ORAL
     Route: 048
     Dates: start: 20080118, end: 20080131
  3. VYVANSE [Suspect]
     Indication: ATTENTION DEFICIT/HYPERACTIVITY DISORDER
     Dosage: 30 MG, 1X/DAY:QD, ORAL, 50 MG, 1X/DAY:QD, ORAL, 30 MG, 1X/DAY:QD, ORAL
     Route: 048
     Dates: start: 20080225
  4. CLARITIN /00413701/ (GLICLAZIDE) [Concomitant]

REACTIONS (15)
  - ARTHRALGIA [None]
  - DECREASED APPETITE [None]
  - DISTURBANCE IN ATTENTION [None]
  - FEELING HOT [None]
  - HAEMATOCRIT DECREASED [None]
  - HAEMOGLOBIN DECREASED [None]
  - INFLAMMATION [None]
  - JOINT SWELLING [None]
  - MUSCULOSKELETAL PAIN [None]
  - OFF LABEL USE [None]
  - SOCIAL AVOIDANT BEHAVIOUR [None]
  - TIC [None]
  - VIRAL INFECTION [None]
  - VIRAL UPPER RESPIRATORY TRACT INFECTION [None]
  - WEIGHT DECREASED [None]
